FAERS Safety Report 8345174-5 (Version None)
Quarter: 2012Q2

REPORT INFORMATION
  Report Type: 
  Country: None (occurrence: None)
  Receive Date: 20120508
  Receipt Date: 20120507
  Transmission Date: 20120825
  Serious: Yes (Hospitalization, Other)
  Sender: FDA-Public Use
  Company Number: PHHO2011JP07365

PATIENT
  Sex: Male
  Weight: 91 kg

DRUGS (21)
  1. BLINDED NO TREATMENT RECEIVED [Suspect]
     Indication: CARDIOVASCULAR DISORDER
     Dosage: CODE NOT BROKEN
     Route: 048
     Dates: start: 20090106, end: 20110831
  2. NOVORAPID [Concomitant]
     Dosage: 8, 8, 8,0
     Dates: start: 20110902
  3. PLACEBO [Suspect]
     Dosage: CODE NOT BROKEN
     Dates: start: 20110901, end: 20111226
  4. ENALAPRIL MALEATE [Concomitant]
     Indication: HYPERTENSION
     Dosage: 5 MG, BID
     Route: 048
     Dates: start: 20090915, end: 20110831
  5. ENALAPRIL MALEATE [Concomitant]
     Dosage: UNK
     Dates: start: 20110901
  6. MAGMITT [Concomitant]
     Indication: CONSTIPATION
     Dosage: 990 MG, UNK
     Route: 048
     Dates: start: 20101221, end: 20110828
  7. BLINDED ALISKIREN [Suspect]
     Indication: CARDIOVASCULAR DISORDER
     Dosage: CODE NOT BROKEN
     Route: 048
     Dates: start: 20090106, end: 20110831
  8. ASPIRIN [Suspect]
     Indication: AORTIC THROMBOSIS
     Dosage: 100 MG, QD
     Route: 048
     Dates: start: 20081217, end: 20110828
  9. LIPITOR [Concomitant]
     Dosage: 20 MG, UNK
     Route: 048
  10. BLINDED ALISKIREN [Suspect]
     Dosage: CODE NOT BROKEN
     Dates: start: 20110901, end: 20111226
  11. LIPITOR [Concomitant]
     Indication: HYPERLIPIDAEMIA
     Dosage: 20 MG, UNK
     Route: 048
     Dates: start: 20100303, end: 20110828
  12. LEVEMIR [Concomitant]
     Dosage: 8 IU, UNK
     Dates: start: 20110904
  13. ASPIRIN [Suspect]
     Dosage: 100 MG, UNK
     Route: 048
  14. PLACEBO [Suspect]
     Indication: CARDIOVASCULAR DISORDER
     Dosage: CODE NOT BROKEN
     Route: 048
     Dates: start: 20090106, end: 20110831
  15. WARFARIN SODIUM [Suspect]
     Dosage: 3 MG, UNK
     Route: 048
     Dates: start: 20110929
  16. NOVORAPID [Concomitant]
     Indication: TYPE 2 DIABETES MELLITUS
     Dosage: 18 IU, UNK
     Route: 058
     Dates: end: 20110902
  17. LEVEMIR [Concomitant]
     Indication: TYPE 2 DIABETES MELLITUS
     Dosage: 16 IU, UNK
     Route: 058
     Dates: start: 20110215, end: 20110901
  18. WARFARIN SANDOZ [Suspect]
     Dosage: 2 MG, UNK
     Route: 048
     Dates: start: 20110901, end: 20110928
  19. MAGMITT [Concomitant]
     Dosage: 990 MG, UNK
  20. BLINDED NO TREATMENT RECEIVED [Suspect]
     Dosage: CODE NOT BROKEN
     Dates: start: 20110901, end: 20111226
  21. WARFARIN SODIUM [Suspect]
     Indication: AORTIC THROMBOSIS
     Dosage: 3.5 MG, QD
     Route: 048
     Dates: start: 20101221, end: 20110828

REACTIONS (2)
  - GASTROINTESTINAL HAEMORRHAGE [None]
  - HEPATIC NEOPLASM MALIGNANT [None]
